FAERS Safety Report 8420046-6 (Version None)
Quarter: 2012Q2

REPORT INFORMATION
  Report Type: 
  Country: None (occurrence: None)
  Receive Date: 20120607
  Receipt Date: 20120606
  Transmission Date: 20120825
  Serious: Yes (Hospitalization, Other)
  Sender: FDA-Public Use
  Company Number: DK-AMGEN-DNKSP2012019206

PATIENT
  Age: 65 Year
  Sex: Female
  Weight: 74 kg

DRUGS (17)
  1. PEGFILGRASTIM [Suspect]
     Indication: MALIGNANT LYMPHOID NEOPLASM
     Dosage: 6 MG, UNK
     Route: 058
     Dates: start: 20120210
  2. CLEMASTINE FUMARATE [Concomitant]
     Dosage: 2 MG, UNK
     Route: 048
     Dates: start: 20120220, end: 20120220
  3. ACETAMINOPHEN [Concomitant]
     Indication: PAIN
     Dosage: 1000 MG, UNK
     Route: 048
     Dates: start: 20120213, end: 20120213
  4. PREDNISONE [Concomitant]
     Indication: MALIGNANT LYMPHOID NEOPLASM
     Dosage: 500 MG, UNK
     Route: 048
     Dates: start: 20120207
  5. CLEMASTINE FUMARATE [Concomitant]
     Dosage: 2 MG, UNK
     Route: 048
     Dates: start: 20120227, end: 20120227
  6. ONDANSETRON [Concomitant]
     Indication: NAUSEA
     Dosage: 8 MG, UNK
     Route: 048
     Dates: start: 20120207, end: 20120208
  7. CLEMASTINE FUMARATE [Concomitant]
     Dosage: 2 MG, UNK
     Route: 048
     Dates: start: 20120207, end: 20120207
  8. ACETAMINOPHEN [Concomitant]
     Dosage: 1000 MG, UNK
     Route: 048
     Dates: start: 20120220, end: 20120220
  9. RITUXIMAB [Concomitant]
     Indication: MALIGNANT LYMPHOID NEOPLASM
     Dosage: 693 MG, UNK
     Route: 042
     Dates: start: 20120207
  10. BACTRIM [Concomitant]
     Indication: INFECTION
     Dosage: UNK
     Route: 048
     Dates: start: 20120207
  11. CYCLOPHOSPHAMIDE [Concomitant]
     Indication: MALIGNANT LYMPHOID NEOPLASM
     Dosage: 1400 MG, UNK
     Route: 042
     Dates: start: 20120207
  12. DOXORUBICIN HCL [Concomitant]
     Indication: MALIGNANT LYMPHOID NEOPLASM
     Dosage: 90 MG, UNK
     Route: 042
     Dates: start: 20120207
  13. ACYCLOVIR [Concomitant]
     Indication: INFECTION
     Dosage: 400 MG, UNK
     Route: 048
     Dates: start: 20120207
  14. LANSOPRAZOLE [Concomitant]
     Dosage: 30 MG, UNK
     Route: 048
     Dates: start: 20120113
  15. CLEMASTINE FUMARATE [Concomitant]
     Dosage: 2 MG, UNK
     Route: 048
     Dates: start: 20120213, end: 20120213
  16. VINCRISTINE [Concomitant]
     Indication: MALIGNANT LYMPHOID NEOPLASM
     Dosage: 2 MG, UNK
     Route: 042
     Dates: start: 20120207
  17. ACETAMINOPHEN [Concomitant]
     Dosage: 1000 MG, UNK
     Route: 048
     Dates: start: 20120227, end: 20120227

REACTIONS (5)
  - NECK PAIN [None]
  - BACK PAIN [None]
  - ARTHRALGIA [None]
  - DYSPNOEA [None]
  - PULMONARY EMBOLISM [None]
